FAERS Safety Report 9361846 (Version 2)
Quarter: 2013Q2

REPORT INFORMATION
  Report Type: Spontaneous
  Country: US (occurrence: US)
  Receive Date: 20130621
  Receipt Date: 20130621
  Transmission Date: 20140414
  Serious: Yes (Hospitalization)
  Sender: FDA-Public Use
  Company Number: US-GLAXOSMITHKLINE-A0845213A

PATIENT
  Age: 65 Year
  Sex: Female

DRUGS (10)
  1. ADVAIR [Suspect]
     Indication: ASTHMA
     Route: 055
     Dates: start: 20081211
  2. VERAMYST [Suspect]
     Indication: RHINITIS ALLERGIC
     Dosage: 27.5MCG UNKNOWN
     Route: 065
     Dates: start: 20101009
  3. BLEACH [Suspect]
  4. VENTOLIN [Suspect]
     Indication: PRODUCT USED FOR UNKNOWN INDICATION
     Dosage: 90MCG UNKNOWN
     Route: 065
     Dates: start: 20121117
  5. THYROID [Concomitant]
  6. SPIRIVA [Concomitant]
  7. PROAIR HFA [Concomitant]
  8. UNSPECIFIED MEDICATION [Concomitant]
  9. NEXIUM [Concomitant]
  10. ALLEGRA [Concomitant]

REACTIONS (4)
  - Pneumonia [Unknown]
  - Pneumonitis chemical [Unknown]
  - Exposure to toxic agent [Unknown]
  - Neoplasm malignant [Unknown]
